FAERS Safety Report 14967328 (Version 1)
Quarter: 2018Q2

REPORT INFORMATION
  Report Type: Spontaneous
  Country: CN (occurrence: CN)
  Receive Date: 20180604
  Receipt Date: 20180604
  Transmission Date: 20180711
  Serious: Yes (Death, Life-Threatening)
  Sender: FDA-Public Use
  Company Number: CN-CHEPLA-C20170174

PATIENT
  Sex: Male

DRUGS (4)
  1. CYTARABINE. [Suspect]
     Active Substance: CYTARABINE
     Indication: LEUKAEMIA RECURRENT
  2. ARSENIC TRIOXIDE (ATO) [Suspect]
     Active Substance: ARSENIC TRIOXIDE
     Indication: LEUKAEMIA RECURRENT
     Dosage: APL: CONVENTIONAL TREATMENTS ATRA PLUS ATO, FOUR COURSES OF ATO?RELAPSE: ATRA, ATO AND DA
  3. DAUNORUBICIN [Suspect]
     Active Substance: DAUNORUBICIN
     Indication: LEUKAEMIA RECURRENT
  4. ALL-TRANS RETINOIC ACID (ATRA) [Suspect]
     Active Substance: TRETINOIN
     Indication: LEUKAEMIA RECURRENT
     Dosage: APL: CONVENTIONAL TREATMENTS ATRA PLUS ATO, FOUR COURSES OF ATO?RELAPSE: ATRA, ATO AND DA

REACTIONS (2)
  - Leukaemia recurrent [Fatal]
  - Drug ineffective [Unknown]
